FAERS Safety Report 6776501-8 (Version None)
Quarter: 2010Q2

REPORT INFORMATION
  Report Type: 
  Country: None (occurrence: None)
  Receive Date: 20100615
  Receipt Date: 20100602
  Transmission Date: 20101027
  Serious: Yes (Death)
  Sender: FDA-Public Use
  Company Number: 1000014411

PATIENT

DRUGS (2)
  1. PROPRANOLOL HYDROCHLORIDE [Suspect]
     Indication: GASTROOESOPHAGEAL VARICEAL HAEMORRHAGE PROPHYLAXIS
     Dosage: ORAL
     Route: 048
  2. PROPRANOLOL [Suspect]
     Indication: GASTROOESOPHAGEAL VARICEAL HAEMORRHAGE PROPHYLAXIS
     Dosage: (0.15 MG/KG), INTRAVENOUS
     Route: 042

REACTIONS (1)
  - HEPATIC FAILURE [None]
